FAERS Safety Report 8896011 (Version 2)
Quarter: 2013Q1

REPORT INFORMATION
  Report Type: Spontaneous
  Country: US (occurrence: US)
  Receive Date: 20121108
  Receipt Date: 20130326
  Transmission Date: 20140127
  Serious: Yes (Death, Hospitalization)
  Sender: FDA-Public Use
  Company Number: PHEH2012US021969

PATIENT
  Sex: Female

DRUGS (2)
  1. RECLAST [Suspect]
     Indication: SENILE OSTEOPOROSIS
     Dosage: 5 MG /YEARLY
     Route: 042
     Dates: start: 20120208
  2. ANTIARRHYTHMICS, CLASS I AND III [Concomitant]
     Dosage: UNK

REACTIONS (3)
  - Post procedural complication [Fatal]
  - Fall [Unknown]
  - Hip fracture [Unknown]
